FAERS Safety Report 9066786 (Version 1)
Quarter: 2013Q1

REPORT INFORMATION
  Report Type: Report from Study
  Country: JP (occurrence: JP)
  Receive Date: 20130214
  Receipt Date: 20130214
  Transmission Date: 20140127
  Serious: Yes (Life-Threatening)
  Sender: FDA-Public Use
  Company Number: JP-GLAXOSMITHKLINE-B0690786A

PATIENT
  Age: 77 None
  Sex: Female
  Weight: 48 kg

DRUGS (9)
  1. ARIXTRA [Suspect]
     Indication: THROMBOSIS PROPHYLAXIS
     Dosage: 2.5MG PER DAY
     Route: 058
     Dates: start: 20100909, end: 20100909
  2. CEFMETAZOLE SODIUM [Concomitant]
     Route: 042
  3. SOLDEM 3AG [Concomitant]
     Route: 042
  4. BFLUID [Concomitant]
     Route: 042
  5. PANTOL [Concomitant]
  6. FUROSEMIDE [Concomitant]
     Route: 042
  7. VEEN-D [Concomitant]
     Route: 042
  8. SOSEGON [Concomitant]
  9. VITAMEDIN [Concomitant]
     Route: 042

REACTIONS (3)
  - Endotoxaemia [Recovering/Resolving]
  - Peritonitis [Not Recovered/Not Resolved]
  - Mechanical ileus [Recovering/Resolving]
